FAERS Safety Report 19981407 (Version 1)
Quarter: 2021Q4

REPORT INFORMATION
  Report Type: Report from Study
  Country: US (occurrence: US)
  Receive Date: 20211022
  Receipt Date: 20211022
  Transmission Date: 20220304
  Serious: Yes (Death, Other)
  Sender: FDA-Public Use
  Company Number: US-ACADIA PHARMACEUTICALS INC.-ACA-2021-PIM-003676

PATIENT
  Sex: Male

DRUGS (9)
  1. NUPLAZID [Suspect]
     Active Substance: PIMAVANSERIN TARTRATE
     Indication: Parkinson^s disease
     Dosage: 34 MILLIGRAM, QD
     Route: 048
     Dates: start: 20201120, end: 20211001
  2. RASAGILINE [Concomitant]
     Active Substance: RASAGILINE
     Dosage: 1 MILLIGRAM
     Dates: end: 20211001
  3. NOURIANZ [Concomitant]
     Active Substance: ISTRADEFYLLINE
     Dosage: 40 MILLIGRAM
     Dates: end: 20211001
  4. PRAMIPEXOLE [Concomitant]
     Active Substance: PRAMIPEXOLE
     Dosage: ER
     Dates: end: 20211001
  5. GOCOVRI [Concomitant]
     Active Substance: AMANTADINE
     Dosage: UNK
     Dates: end: 20211001
  6. RYTARY [Concomitant]
     Active Substance: CARBIDOPA\LEVODOPA
     Dosage: UNK
     Dates: end: 20211001
  7. TROSPIUM [Concomitant]
     Active Substance: TROSPIUM
     Dosage: 20 MILLIGRAM, QD
     Dates: end: 20211001
  8. CLONAZEPAM [Concomitant]
     Active Substance: CLONAZEPAM
     Dosage: 0.5
     Dates: end: 20211001
  9. MIRABEGRON [Concomitant]
     Active Substance: MIRABEGRON
     Dosage: 50 MILLIGRAM
     Dates: end: 20211001

REACTIONS (3)
  - Parkinson^s disease [Recovered/Resolved]
  - Dysphagia [Unknown]
  - Bedridden [Unknown]
